FAERS Safety Report 8891009 (Version 2)
Quarter: 2012Q4

REPORT INFORMATION
  Report Type: 
  Country: US (occurrence: US)
  Receive Date: 20121106
  Receipt Date: 20121226
  Transmission Date: 20130627
  Serious: Yes (Hospitalization)
  Sender: FDA-Public Use
  Company Number: US-PFIZER INC-2012272769

PATIENT
  Age: 74 Year
  Sex: Male
  Weight: 81.63 kg

DRUGS (5)
  1. XALATAN [Suspect]
     Indication: GLAUCOMA
     Dosage: both eyes (OU) daily at bedtime (QHS)
     Route: 061
     Dates: start: 20101206
  2. ZETIA [Concomitant]
     Dosage: 10 mg, UNK
     Dates: start: 20100306
  3. FISH OIL [Concomitant]
     Dosage: 500-100mg UNK
     Dates: start: 20100603
  4. METOPROLOL TARTRATE [Concomitant]
     Dosage: 25 mg, UNK
     Dates: start: 20100603
  5. ASPIR [Concomitant]
     Dosage: 81 mg, UNK
     Dates: start: 20100603

REACTIONS (1)
  - Groin pain [Recovered/Resolved]
